FAERS Safety Report 5159923-0 (Version None)
Quarter: 2006Q4

REPORT INFORMATION
  Report Type: 
  Country: None (occurrence: None)
  Receive Date: 20061129
  Receipt Date: 20061017
  Transmission Date: 20070319
  Serious: Yes (Other)
  Sender: FDA-Public Use
  Company Number: PHHO2006JP17323

PATIENT
  Age: 53 Year
  Sex: Male
  Weight: 52 kg

DRUGS (2)
  1. GLEEVEC [Suspect]
     Indication: GASTROINTESTINAL STROMAL TUMOUR
     Dosage: 300 MG, QD
     Route: 048
     Dates: start: 20040311, end: 20050621
  2. GLEEVEC [Suspect]
     Dosage: 400 MG, QD
     Route: 048
     Dates: start: 20050622, end: 20060220

REACTIONS (3)
  - HEARING IMPAIRED [None]
  - HEAT RASH [None]
  - TINNITUS [None]
